FAERS Safety Report 14804906 (Version 2)
Quarter: 2018Q2

REPORT INFORMATION
  Report Type: Spontaneous
  Country: US (occurrence: US)
  Receive Date: 20180425
  Receipt Date: 20180516
  Transmission Date: 20180711
  Serious: Yes (Hospitalization)
  Sender: FDA-Public Use
  Company Number: US-MIKART, INC.-2046455

PATIENT
  Age: 35 Year
  Sex: Male

DRUGS (2)
  1. CARBINOXAMINE MALEATE. [Suspect]
     Active Substance: CARBINOXAMINE MALEATE
     Route: 048
     Dates: end: 20180416
  2. INJECTABLE BIOLOGIC [Concomitant]

REACTIONS (3)
  - Dizziness [Unknown]
  - Tachycardia [Recovered/Resolved]
  - Feeling abnormal [Unknown]

NARRATIVE: CASE EVENT DATE: 20180416
